FAERS Safety Report 9077009 (Version 1)
Quarter: 2013Q1

REPORT INFORMATION
  Report Type: Report from Study
  Country: US (occurrence: US)
  Receive Date: 20130129
  Receipt Date: 20130129
  Transmission Date: 20140127
  Serious: No
  Sender: FDA-Public Use
  Company Number: US-ABBOTT-12P-163-0925179-00

PATIENT
  Age: 69 Year
  Sex: Female

DRUGS (10)
  1. HUMIRA 40 MG/0.8 ML PEN [Suspect]
     Indication: CROHN^S DISEASE
     Dates: start: 20120315, end: 20120315
  2. HUMIRA 40 MG/0.8 ML PEN [Suspect]
     Dates: start: 20120329, end: 20120329
  3. HUMIRA 40 MG/0.8 ML PEN [Suspect]
     Dates: end: 20120423
  4. HYZAAR [Concomitant]
     Indication: BLOOD PRESSURE
     Dosage: 50 MG DAILY AND IF REALLY HIGH 100MG
  5. CLONIDINE [Concomitant]
     Indication: BLOOD PRESSURE
     Dosage: 0.1MG PATCH, CHANGE WEEKLY
  6. CELEXA [Concomitant]
     Indication: DEPRESSION
     Dosage: 40MG DAILY
  7. MS CONTIN [Concomitant]
     Indication: BACK PAIN
     Dosage: 15MG EVERY 8 HOURS, BUT USUALLY ONLY NEEDS ONE A DAY
  8. MS CONTIN [Concomitant]
     Indication: INTERVERTEBRAL DISC PROTRUSION
  9. PENTASA [Concomitant]
     Indication: PRODUCT USED FOR UNKNOWN INDICATION
  10. TRAZODONE [Concomitant]
     Indication: INSOMNIA
     Dosage: NIGHTLY

REACTIONS (6)
  - Photophobia [Not Recovered/Not Resolved]
  - Herpes zoster [Not Recovered/Not Resolved]
  - Eye pain [Not Recovered/Not Resolved]
  - Headache [Not Recovered/Not Resolved]
  - Burning sensation [Not Recovered/Not Resolved]
  - Neuralgia [Not Recovered/Not Resolved]
